FAERS Safety Report 20042482 (Version 1)
Quarter: 2021Q4

REPORT INFORMATION
  Report Type: Spontaneous
  Country: US (occurrence: US)
  Receive Date: 20211108
  Receipt Date: 20211108
  Transmission Date: 20220303
  Serious: No
  Sender: FDA-Public Use
  Company Number: US-SA-SAC20211029001059

PATIENT
  Age: 60 Year
  Sex: Female

DRUGS (14)
  1. DUPIXENT [Suspect]
     Active Substance: DUPILUMAB
     Indication: Dermatitis allergic
     Dosage: 300 MG,QOW
     Route: 058
  2. DUPIXENT [Suspect]
     Active Substance: DUPILUMAB
     Indication: Illness
  3. HALOBETASOL PROPIONATE [Concomitant]
     Active Substance: HALOBETASOL PROPIONATE
  4. ESCITALOPRAM OXALATE [Concomitant]
     Active Substance: ESCITALOPRAM OXALATE
  5. PENNSAID [Concomitant]
     Active Substance: DICLOFENAC SODIUM
     Dosage: SOL MD PMP
  6. BENADRYL [Concomitant]
     Active Substance: DIPHENHYDRAMINE HYDROCHLORIDE
     Dosage: UNK MG
  7. FIBER [Concomitant]
     Active Substance: PSYLLIUM HUSK
     Dosage: UNK MG
  8. CLONIDINE HYDROCHLORIDE [Concomitant]
     Active Substance: CLONIDINE HYDROCHLORIDE
     Dosage: UNK MG
  9. IMURAN [Concomitant]
     Active Substance: AZATHIOPRINE
     Dosage: UNK MG
  10. VITAMIN D3 [Concomitant]
     Active Substance: CHOLECALCIFEROL
     Dosage: 120MG-1000
  11. VITAMIN C [Concomitant]
     Active Substance: ASCORBIC ACID
  12. ZYRTEC [Concomitant]
     Active Substance: CETIRIZINE HYDROCHLORIDE
     Dosage: UNK MG
  13. CARVEDILOL [Concomitant]
     Active Substance: CARVEDILOL
     Dosage: UNK MG
  14. PREVIDENT 5000 ENAMEL PROTECT [Concomitant]
     Active Substance: POTASSIUM NITRATE\SODIUM FLUORIDE

REACTIONS (3)
  - Dry skin [Unknown]
  - Circumoral swelling [Unknown]
  - Product use in unapproved indication [Unknown]
